FAERS Safety Report 7710712-X (Version None)
Quarter: 2011Q3

REPORT INFORMATION
  Report Type: 
  Country: None (occurrence: None)
  Receive Date: 20110825
  Receipt Date: 20110812
  Transmission Date: 20111222
  Serious: Yes (Other)
  Sender: FDA-Public Use
  Company Number: NZ-MYLANLABS-2011S1016817

PATIENT
  Sex: Female

DRUGS (1)
  1. SOTALOL HCL [Suspect]
     Indication: BLOOD PRESSURE
     Route: 048

REACTIONS (3)
  - URINARY INCONTINENCE [None]
  - DYSPEPSIA [None]
  - ABDOMINAL DISCOMFORT [None]
